FAERS Safety Report 6885557-3 (Version None)
Quarter: 2010Q3

REPORT INFORMATION
  Report Type: 
  Country: None (occurrence: None)
  Receive Date: 20100729
  Receipt Date: 20080416
  Transmission Date: 20110219
  Serious: Yes (Hospitalization, Other)
  Sender: FDA-Public Use
  Company Number: US-PFIZER INC-2007081280

PATIENT
  Sex: Female
  Weight: 63.5 kg

DRUGS (2)
  1. CELEBREX [Suspect]
     Indication: BACK PAIN
     Dates: start: 19980101
  2. CELEBREX [Suspect]
     Indication: NECK PAIN

REACTIONS (4)
  - DEPRESSION [None]
  - DYSPNOEA [None]
  - HEADACHE [None]
  - INSOMNIA [None]
